FAERS Safety Report 8368530-8 (Version None)
Quarter: 2012Q2

REPORT INFORMATION
  Report Type: 
  Country: None (occurrence: None)
  Receive Date: 20120518
  Receipt Date: 20120508
  Transmission Date: 20120825
  Serious: Yes (Hospitalization)
  Sender: FDA-Public Use
  Company Number: US-BIOGENIDEC-2012BI014160

PATIENT
  Age: 59 Year
  Sex: Female

DRUGS (1)
  1. AVONEX [Suspect]
     Indication: MULTIPLE SCLEROSIS
     Route: 030
     Dates: start: 20061108

REACTIONS (7)
  - ASTHENIA [None]
  - TEMPERATURE INTOLERANCE [None]
  - MOBILITY DECREASED [None]
  - FALL [None]
  - LOSS OF CONSCIOUSNESS [None]
  - DEHYDRATION [None]
  - HYPORESPONSIVE TO STIMULI [None]
